FAERS Safety Report 7123507-5 (Version None)
Quarter: 2010Q4

REPORT INFORMATION
  Report Type: 
  Country: None (occurrence: None)
  Receive Date: 20101125
  Receipt Date: 20091109
  Transmission Date: 20110411
  Serious: No
  Sender: FDA-Public Use
  Company Number: 2009BI036449

PATIENT
  Age: 44 Year
  Sex: Female

DRUGS (2)
  1. TYSABRI [Suspect]
     Indication: MULTIPLE SCLEROSIS
     Route: 042
     Dates: start: 20081218
  2. AVONEX [Concomitant]
     Indication: MULTIPLE SCLEROSIS
     Route: 030

REACTIONS (1)
  - VOCAL CORD PARALYSIS [None]
